FAERS Safety Report 22530918 (Version 1)
Quarter: 2023Q2

REPORT INFORMATION
  Report Type: Spontaneous
  Country: US (occurrence: US)
  Receive Date: 20230607
  Receipt Date: 20230607
  Transmission Date: 20230721
  Serious: No
  Sender: FDA-Public Use
  Company Number: US-AMNEAL PHARMACEUTICALS-2023-AMRX-01736

PATIENT
  Sex: Female

DRUGS (1)
  1. DIFLUPREDNATE [Suspect]
     Active Substance: DIFLUPREDNATE
     Indication: Product used for unknown indication
     Route: 047

REACTIONS (3)
  - Product packaging difficult to open [Unknown]
  - Product leakage [Unknown]
  - No adverse event [Unknown]
